FAERS Safety Report 19842157 (Version 1)
Quarter: 2021Q3

REPORT INFORMATION
  Report Type: Other
  Country: US (occurrence: US)
  Receive Date: 20210916
  Receipt Date: 20210916
  Transmission Date: 20211014
  Serious: Yes (Hospitalization)
  Sender: FDA-Public Use
  Company Number: US-LEADIANT BIOSCIENCES INC-2021STPI000180

PATIENT
  Age: 31 Year
  Sex: Female

DRUGS (1)
  1. MATULANE [Suspect]
     Active Substance: PROCARBAZINE HYDROCHLORIDE
     Indication: HODGKIN^S DISEASE
     Dosage: 50 MILLIGRAM, 3 CAPSULES DAILY ON DAYS 1 TO 7 OF EVERY 21 DAY CYCLE
     Route: 048
     Dates: start: 20210420

REACTIONS (1)
  - Pneumonitis chemical [Unknown]

NARRATIVE: CASE EVENT DATE: 20210607
